FAERS Safety Report 6737924-6 (Version None)
Quarter: 2010Q2

REPORT INFORMATION
  Report Type: 
  Country: None (occurrence: None)
  Receive Date: 20100521
  Receipt Date: 20100521
  Transmission Date: 20101027
  Serious: Yes (Other)
  Sender: FDA-Public Use
  Company Number: None

PATIENT
  Sex: Male
  Weight: 48 kg

DRUGS (3)
  1. ZYPREXA [Suspect]
     Indication: SCHIZOPHRENIA
     Dosage: 12.5 MG Q HS PO STARTED 10 DAYS PRIOR TO ADR
     Route: 048
  2. CLONIDINE [Concomitant]
  3. BENADRYL [Concomitant]

REACTIONS (1)
  - URTICARIA [None]
